FAERS Safety Report 6525672-7 (Version None)
Quarter: 2009Q4

REPORT INFORMATION
  Report Type: 
  Country: None (occurrence: None)
  Receive Date: 20091222
  Receipt Date: 20091208
  Transmission Date: 20100525
  Serious: Yes (Death, Hospitalization)
  Sender: FDA-Public Use
  Company Number: 2009001778

PATIENT
  Age: 69 Year
  Sex: Female

DRUGS (7)
  1. ERLOTINIB HYDROCHLORIDE [Suspect]
     Indication: PANCREATIC CARCINOMA METASTATIC
     Dosage: (50 MG, QD), ORAL
     Route: 048
     Dates: start: 20090212, end: 20090507
  2. GEMCITABINE [Suspect]
     Indication: PANCREATIC CARCINOMA METASTATIC
     Dosage: (1460 MG, QW), INTRAVENOUS
     Route: 042
     Dates: start: 20090212, end: 20090507
  3. OMEPRAZOLE [Concomitant]
  4. NAPROXEN SODIUM [Concomitant]
  5. NEUROBION (NEUROBION FOR INJECTION) [Concomitant]
  6. NORTRIPTYLINE HCL [Concomitant]
  7. Q.V. SKIN LOTION [Concomitant]

REACTIONS (4)
  - ASTHENIA [None]
  - BLOOD PH DECREASED [None]
  - PNEUMONITIS [None]
  - PNEUMOTHORAX [None]
